FAERS Safety Report 5912416-2 (Version None)
Quarter: 2008Q4

REPORT INFORMATION
  Report Type: 
  Country: None (occurrence: None)
  Receive Date: 20081003
  Receipt Date: 20080923
  Transmission Date: 20090506
  Serious: Yes (Other)
  Sender: FDA-Public Use
  Company Number: CHPA2008US16217

PATIENT
  Age: 75 Year
  Sex: Female

DRUGS (2)
  1. MAALOX ANTIACID/ ANTIGAS MAX STR MULTI SYMPTOM (MAGNESIUM HYDROXIDE, A [Suspect]
     Indication: ABDOMINAL PAIN UPPER
     Dosage: 3 TSP, BID (1 TBSP BID) PRN, ORAL
     Route: 048
     Dates: start: 19880101
  2. MAALOX ANTIACID/ ANTIGAS MAX STR MULTI SYMPTOM (MAGNESIUM HYDROXIDE, A [Suspect]
     Indication: DYSPEPSIA
     Dosage: 3 TSP, BID (1 TBSP BID) PRN, ORAL
     Route: 048
     Dates: start: 19880101

REACTIONS (4)
  - CHOLECYSTECTOMY [None]
  - DIARRHOEA [None]
  - DRUG EFFECT DECREASED [None]
  - THERAPEUTIC RESPONSE UNEXPECTED WITH DRUG SUBSTITUTION [None]
